FAERS Safety Report 8790849 (Version 2)
Quarter: 2012Q4

REPORT INFORMATION
  Report Type: Spontaneous
  Country: PL (occurrence: None)
  Receive Date: 20120907
  Receipt Date: 20120927
  Transmission Date: 20130627
  Serious: Yes (Life-Threatening, Hospitalization, Other)
  Sender: FDA-Public Use
  Company Number: IMP_05972_2012

PATIENT
  Age: 29 Year
  Sex: Male

DRUGS (1)
  1. DIGOXIN (DIGOXIN) [Suspect]
     Indication: PRODUCT USED FOR UNKNOWN INDICATION
     Dosage: 90 tablets
     Route: 048

REACTIONS (4)
  - Suicide attempt [None]
  - Conduction disorder [None]
  - Arrhythmia [None]
  - Incorrect dose administered [None]
